FAERS Safety Report 5062706-3 (Version None)
Quarter: 2006Q3

REPORT INFORMATION
  Report Type: 
  Country: None (occurrence: None)
  Receive Date: 20060703
  Receipt Date: 20051025
  Transmission Date: 20061208
  Serious: No
  Sender: FDA-Public Use
  Company Number: 2005S1010591

PATIENT
  Age: 46 Year
  Sex: Female

DRUGS (8)
  1. CLOZAPINE [Suspect]
     Dosage: SEE IMAGE
     Route: 048
     Dates: start: 20030821, end: 20051019
  2. METOPROLOL SUCCINATE [Concomitant]
  3. SIMVASTATIN [Concomitant]
  4. LEVOTHYROXINE SODIUM [Concomitant]
  5. ROSIGLITAZONE MALEATE [Concomitant]
  6. VALPROATE SODIUM [Concomitant]
  7. ARIPIPRAZOLE [Concomitant]
  8. LISINOPRIL [Concomitant]

REACTIONS (1)
  - GRANULOCYTOPENIA [None]
